FAERS Safety Report 17033244 (Version 1)
Quarter: 2019Q4

REPORT INFORMATION
  Report Type: Spontaneous
  Country: US (occurrence: US)
  Receive Date: 20191114
  Receipt Date: 20191114
  Transmission Date: 20200122
  Serious: No
  Sender: FDA-Public Use
  Company Number: US-SA-2019SA309708

PATIENT
  Age: 51 Year
  Sex: Female

DRUGS (8)
  1. DIPHENHYDRAMINE. [Concomitant]
     Active Substance: DIPHENHYDRAMINE
  2. DUPIXENT [Suspect]
     Active Substance: DUPILUMAB
     Indication: DERMATITIS ATOPIC
     Dosage: 300 MG, QOW
     Route: 058
     Dates: start: 20190701
  3. TOPIRAMATE. [Concomitant]
     Active Substance: TOPIRAMATE
  4. CYMBALTA [Concomitant]
     Active Substance: DULOXETINE HYDROCHLORIDE
  5. MELOXICAM. [Concomitant]
     Active Substance: MELOXICAM
  6. PROCTOZONE HC [Concomitant]
     Active Substance: HYDROCORTISONE
  7. HYDROXYZINE [Concomitant]
     Active Substance: HYDROXYZINE HYDROCHLORIDE
  8. BETAMETHASONE VALERATE. [Concomitant]
     Active Substance: BETAMETHASONE VALERATE

REACTIONS (2)
  - Injection site reaction [Unknown]
  - Rash [Unknown]

NARRATIVE: CASE EVENT DATE: 20191101
